FAERS Safety Report 16081723 (Version 3)
Quarter: 2019Q1

REPORT INFORMATION
  Report Type: Spontaneous
  Country: RO (occurrence: RO)
  Receive Date: 20190316
  Receipt Date: 20190322
  Transmission Date: 20190418
  Serious: Yes (Hospitalization, Other)
  Sender: FDA-Public Use
  Company Number: PHHY2019RO054307

PATIENT
  Age: 43 Year
  Sex: Male
  Weight: 100 kg

DRUGS (5)
  1. TASIGNA [Suspect]
     Active Substance: NILOTINIB
     Indication: CHRONIC MYELOID LEUKAEMIA
     Dosage: 200 MG, UNK
     Route: 065
  2. SORTIS [Concomitant]
     Active Substance: ATORVASTATIN
     Indication: DYSLIPIDAEMIA
     Dosage: 80 MG, QD
     Route: 048
     Dates: start: 20180628
  3. TERTENSIF [Concomitant]
     Active Substance: INDAPAMIDE
     Indication: HYPERTENSION
     Dosage: 1.5 MG, QD
     Route: 048
     Dates: start: 20180628
  4. TASIGNA [Suspect]
     Active Substance: NILOTINIB
     Dosage: 800 MG, UNK (TWO TABLETS X 2/DA)
     Route: 048
     Dates: start: 20150301, end: 20190312
  5. ASPENTER [Concomitant]
     Active Substance: ASPIRIN
     Indication: ARTERIAL DISORDER
     Dosage: 25 MG, QD
     Route: 048
     Dates: start: 20181113

REACTIONS (5)
  - Motor dysfunction [Unknown]
  - Peripheral artery occlusion [Recovered/Resolved with Sequelae]
  - Ischaemic stroke [Recovered/Resolved]
  - Angiopathy [Unknown]
  - Sensory loss [Unknown]

NARRATIVE: CASE EVENT DATE: 20180628
